FAERS Safety Report 9493178 (Version 1)
Quarter: 2013Q3

REPORT INFORMATION
  Report Type: Spontaneous
  Country: NO (occurrence: NO)
  Receive Date: 20130902
  Receipt Date: 20130902
  Transmission Date: 20140515
  Serious: Yes (Other)
  Sender: FDA-Public Use
  Company Number: NO-BRISTOL-MYERS SQUIBB COMPANY-19188358

PATIENT
  Age: 22 Year
  Sex: Female

DRUGS (5)
  1. ABILIFY [Suspect]
     Indication: PSYCHOTIC DISORDER
     Route: 048
     Dates: start: 201209, end: 201306
  2. ZYPREXA [Suspect]
     Indication: PSYCHOTIC DISORDER
     Route: 048
     Dates: start: 201209, end: 201306
  3. ATARAX [Concomitant]
     Dates: start: 201206
  4. VIVAL [Concomitant]
     Dates: start: 201205
  5. TRUXAL [Concomitant]
     Dates: start: 201204

REACTIONS (1)
  - Keratoconus [Recovered/Resolved with Sequelae]
